FAERS Safety Report 6314822-3 (Version None)
Quarter: 2009Q3

REPORT INFORMATION
  Report Type: 
  Country: None (occurrence: None)
  Receive Date: 20090817
  Receipt Date: 20090817
  Transmission Date: 20100115
  Serious: No
  Sender: FDA-Public Use
  Company Number: None

PATIENT
  Age: 65 Year
  Sex: Male
  Weight: 88.4514 kg

DRUGS (1)
  1. JANUVIA [Suspect]
     Indication: TYPE 2 DIABETES MELLITUS
     Dosage: 100MG  1 PER DAY

REACTIONS (4)
  - BURNING SENSATION [None]
  - PAIN OF SKIN [None]
  - RASH ERYTHEMATOUS [None]
  - SKIN REACTION [None]
